FAERS Safety Report 23235771 (Version 1)
Quarter: 2023Q4

REPORT INFORMATION
  Report Type: Report from Study
  Country: US (occurrence: None)
  Receive Date: 20231128
  Receipt Date: 20231128
  Transmission Date: 20240109
  Serious: Yes (Hospitalization)
  Sender: FDA-Public Use
  Company Number: 2023A265905

PATIENT
  Sex: Male

DRUGS (1)
  1. LYNPARZA [Suspect]
     Active Substance: OLAPARIB
     Indication: Colon cancer metastatic
     Route: 048
     Dates: start: 20230907

REACTIONS (2)
  - Internal haemorrhage [Recovered/Resolved]
  - Product dose omission issue [Recovered/Resolved]
